FAERS Safety Report 6697737-0 (Version None)
Quarter: 2010Q2

REPORT INFORMATION
  Report Type: 
  Country: None (occurrence: None)
  Receive Date: 20100426
  Receipt Date: 20100421
  Transmission Date: 20101027
  Serious: Yes (Death)
  Sender: FDA-Public Use
  Company Number: FR-GILEAD-2010-0028678

PATIENT
  Sex: Male

DRUGS (4)
  1. VIREAD [Suspect]
     Indication: HIV INFECTION
     Route: 048
     Dates: start: 20090602
  2. KIVEXA [Suspect]
     Indication: HIV INFECTION
     Route: 048
     Dates: start: 20090602
  3. NORVIR [Suspect]
     Indication: HIV INFECTION
     Route: 048
     Dates: start: 20090602
  4. REYATAZ [Suspect]
     Indication: HIV INFECTION
     Route: 048
     Dates: start: 20090602

REACTIONS (1)
  - CARDIO-RESPIRATORY ARREST [None]
